FAERS Safety Report 8922398 (Version 2)
Quarter: 2013Q1

REPORT INFORMATION
  Report Type: Report from Study
  Country: CA (occurrence: CA)
  Receive Date: 20121126
  Receipt Date: 20130111
  Transmission Date: 20140127
  Serious: Yes (Life-Threatening, Hospitalization)
  Sender: FDA-Public Use
  Company Number: CA-JNJFOC-20121107881

PATIENT
  Age: 59 Year
  Sex: Female
  Weight: 77.3 kg

DRUGS (2)
  1. REMICADE [Suspect]
     Indication: PSORIASIS
     Dosage: DURATION OF TREATMENT: 86 WEEKS
     Route: 042
     Dates: start: 20110106
  2. PREDNISONE [Concomitant]
     Dosage: DURATION OF TREATMENT: 5 DAYS, LAST DOSE WAS ON THE DATE OF REPORTING
     Route: 048

REACTIONS (2)
  - Angioedema [Recovered/Resolved]
  - Adverse event [Unknown]
